FAERS Safety Report 24621375 (Version 3)
Quarter: 2025Q2

REPORT INFORMATION
  Report Type: Spontaneous
  Country: US (occurrence: None)
  Receive Date: 20241114
  Receipt Date: 20250520
  Transmission Date: 20250716
  Serious: No
  Sender: INCYTE
  Company Number: US-INCYTE CORPORATION-2024IN011758

PATIENT
  Age: 40 Year
  Weight: 93.8 kg

DRUGS (3)
  1. JAKAFI [Suspect]
     Active Substance: RUXOLITINIB
     Indication: Chronic myeloid leukaemia
     Dosage: 10 MILLIGRAM, BID
  2. JAKAFI [Suspect]
     Active Substance: RUXOLITINIB
     Dosage: 10 MILLIGRAM, BID
  3. JAKAFI [Suspect]
     Active Substance: RUXOLITINIB
     Dosage: 10 MILLIGRAM, BID

REACTIONS (12)
  - Nasal injury [Unknown]
  - Anxiety [Unknown]
  - Gout [Unknown]
  - Vision blurred [Unknown]
  - White blood cell count increased [Unknown]
  - Cough [Unknown]
  - Rhinorrhoea [Unknown]
  - Nasopharyngitis [Unknown]
  - Epistaxis [Recovered/Resolved]
  - Red blood cell count decreased [Unknown]
  - Platelet count abnormal [Unknown]
  - Off label use [Unknown]
